FAERS Safety Report 7824900-5 (Version None)
Quarter: 2011Q4

REPORT INFORMATION
  Report Type: 
  Country: None (occurrence: None)
  Receive Date: 20111019
  Receipt Date: 20110217
  Transmission Date: 20120403
  Serious: No
  Sender: FDA-Public Use
  Company Number: US-BRISTOL-MYERS SQUIBB COMPANY-15557374

PATIENT
  Age: 67 Year
  Sex: Male
  Weight: 79 kg

DRUGS (3)
  1. AVALIDE [Suspect]
  2. METOPROLOL TARTRATE [Concomitant]
  3. MULTI-VITAMIN [Concomitant]

REACTIONS (1)
  - HYPERTENSION [None]
